FAERS Safety Report 25234694 (Version 1)
Quarter: 2025Q2

REPORT INFORMATION
  Report Type: Spontaneous
  Country: US (occurrence: US)
  Receive Date: 20250424
  Receipt Date: 20250424
  Transmission Date: 20250717
  Serious: No
  Sender: CSL BEHRING
  Company Number: US-BEH-2025202199

PATIENT
  Age: 32 Year
  Sex: Female

DRUGS (6)
  1. HIZENTRA [Suspect]
     Active Substance: HUMAN IMMUNOGLOBULIN G
     Route: 065
  2. HIZENTRA [Suspect]
     Active Substance: HUMAN IMMUNOGLOBULIN G
     Route: 065
     Dates: start: 20250116
  3. DUPIXENT [Suspect]
     Active Substance: DUPILUMAB
     Indication: Hypogammaglobulinaemia
     Dosage: 300 MG, QOW
     Route: 058
     Dates: start: 202404
  4. DUPIXENT [Suspect]
     Active Substance: DUPILUMAB
     Indication: Agoraphobia
  5. DUPIXENT [Suspect]
     Active Substance: DUPILUMAB
     Indication: Psoriasis
  6. DUPIXENT [Suspect]
     Active Substance: DUPILUMAB
     Indication: Asthma

REACTIONS (2)
  - Pain in extremity [Unknown]
  - Product use in unapproved indication [Unknown]
